FAERS Safety Report 23593844 (Version 1)
Quarter: 2024Q1

REPORT INFORMATION
  Report Type: Spontaneous
  Country: US (occurrence: US)
  Receive Date: 20240305
  Receipt Date: 20240305
  Transmission Date: 20240410
  Serious: Yes (Death, Other)
  Sender: FDA-Public Use
  Company Number: US-BRISTOL-MYERS SQUIBB COMPANY-2024-031827

PATIENT
  Age: 72 Year
  Sex: Male

DRUGS (1)
  1. OPDIVO [Suspect]
     Active Substance: NIVOLUMAB
     Indication: Hepatic cancer
     Dosage: STRENGTH: 250 MG VIAL
     Route: 042
     Dates: start: 20220922, end: 20221116

REACTIONS (2)
  - Death [Fatal]
  - Off label use [Unknown]
